FAERS Safety Report 9638218 (Version 1)
Quarter: 2013Q4

REPORT INFORMATION
  Report Type: Spontaneous
  Country: US (occurrence: US)
  Receive Date: 20131022
  Receipt Date: 20131022
  Transmission Date: 20140711
  Serious: No
  Sender: FDA-Public Use
  Company Number: US-PFIZER INC-2013299440

PATIENT
  Age: 60 Year
  Sex: Male
  Weight: 103.86 kg

DRUGS (25)
  1. XELJANZ [Suspect]
     Indication: RHEUMATOID ARTHRITIS
     Dosage: 5 MG, 2X/DAY
     Route: 048
     Dates: start: 201307
  2. ALDACTONE [Concomitant]
     Dosage: UNK
  3. ARAVA [Concomitant]
     Dosage: UNK
  4. AVINZA [Concomitant]
     Dosage: UNK
  5. CALTRATE [Concomitant]
     Dosage: UNK
  6. CRESTOR [Concomitant]
     Dosage: UNK
  7. FISH OIL [Concomitant]
     Dosage: UNK
  8. FLAXSEED [Concomitant]
     Dosage: UNK
  9. INDOMETHACIN [Concomitant]
     Dosage: UNK
  10. LASIX [Concomitant]
     Dosage: UNK
  11. LISINOPRIL [Concomitant]
     Dosage: UNK
  12. ASPIRIN [Concomitant]
     Dosage: LOW DOSE
  13. NITRO-DUR [Concomitant]
     Dosage: UNK
  14. NOVOLOG [Concomitant]
     Dosage: UNK
  15. POTASSIUM [Concomitant]
     Dosage: UNK
  16. PREDNISONE [Concomitant]
     Dosage: UNK
  17. ROBAXIN [Concomitant]
     Dosage: UNK
  18. TOPROL [Concomitant]
     Dosage: UNK
  19. VENTOLIN [Concomitant]
     Dosage: UNK
  20. VITAMIN C [Concomitant]
     Dosage: UNK
  21. VITAMIN D [Concomitant]
     Dosage: UNK
  22. XYZAL [Concomitant]
     Dosage: UNK
  23. HUMULIN [Concomitant]
     Dosage: UNK
  24. NORCO [Concomitant]
     Dosage: UNK
  25. LACTULOSE [Concomitant]
     Dosage: UNK

REACTIONS (3)
  - Red blood cell count decreased [Unknown]
  - Abdominal discomfort [Unknown]
  - Abdominal tenderness [Unknown]
